FAERS Safety Report 6541951-1 (Version None)
Quarter: 2010Q1

REPORT INFORMATION
  Report Type: 
  Country: None (occurrence: None)
  Receive Date: 20100119
  Receipt Date: 20100112
  Transmission Date: 20100710
  Serious: No
  Sender: FDA-Public Use
  Company Number: US-B.I. PHARMACEUTICALS,INC./RIDGEFIELD-2010-BP-00341BP

PATIENT
  Age: 45 Year
  Sex: Female

DRUGS (5)
  1. SPIRIVA [Suspect]
     Indication: ASTHMA
     Dosage: 18 MCG
     Route: 055
     Dates: start: 20090901
  2. XOPENEX [Concomitant]
     Indication: ASTHMA
  3. VENTOLIN [Concomitant]
     Indication: ASTHMA
  4. SINGULAIR [Concomitant]
     Indication: ASTHMA
  5. ALVESCO [Concomitant]
     Indication: ASTHMA

REACTIONS (1)
  - DYSPNOEA [None]
